FAERS Safety Report 8780787 (Version 3)
Quarter: 2014Q1

REPORT INFORMATION
  Report Type: Spontaneous
  Country: US (occurrence: US)
  Receive Date: 20120913
  Receipt Date: 20140212
  Transmission Date: 20141002
  Serious: No
  Sender: FDA-Public Use
  Company Number: US-009507513-1209USA005036

PATIENT
  Age: 31 Year
  Sex: Female

DRUGS (2)
  1. HEXADROL TABLETS [Suspect]
     Indication: DEXAMETHASONE SUPPRESSION TEST
     Dosage: 1 MG, UNK
     Route: 065
  2. HYDROCORTONE [Suspect]
     Dosage: 20 MG IN THE MORNING AND 10 MG IN THE EVENING
     Route: 048

REACTIONS (1)
  - Exposure during pregnancy [Recovered/Resolved]
